FAERS Safety Report 4536426-5 (Version None)
Quarter: 2004Q4

REPORT INFORMATION
  Report Type: 
  Country: None (occurrence: None)
  Receive Date: 20041223
  Receipt Date: 20041008
  Transmission Date: 20050328
  Serious: No
  Sender: FDA-Public Use
  Company Number: US-GLAXOSMITHKLINE-A0529108A

PATIENT
  Age: 47 Year
  Sex: Male

DRUGS (2)
  1. FLONASE [Suspect]
     Indication: SEASONAL ALLERGY
     Dosage: 100MCG TWICE PER DAY
     Route: 045
     Dates: start: 20040909
  2. AMOXICILLIN [Concomitant]
     Route: 065
     Dates: start: 20040909

REACTIONS (1)
  - DRUG INEFFECTIVE [None]
